FAERS Safety Report 12681147 (Version 1)
Quarter: 2016Q3

REPORT INFORMATION
  Report Type: Report from Study
  Country: US (occurrence: US)
  Receive Date: 20160824
  Receipt Date: 20160824
  Transmission Date: 20161109
  Serious: Yes (Hospitalization, Other)
  Sender: FDA-Public Use
  Company Number: US-AMGEN-USASL2016107687

PATIENT
  Age: 53 Year
  Sex: Female

DRUGS (2)
  1. ENBREL [Suspect]
     Active Substance: ETANERCEPT
     Indication: RHEUMATOID ARTHRITIS
     Dosage: UNK
     Route: 065
  2. PLAQUENIL [Concomitant]
     Active Substance: HYDROXYCHLOROQUINE SULFATE
     Dosage: 200 MG, BID
     Route: 065

REACTIONS (13)
  - Blood glucose decreased [Unknown]
  - Caesarean section [Unknown]
  - Arthralgia [Unknown]
  - Post procedural infection [Unknown]
  - Surgery [Unknown]
  - Hypoaesthesia oral [Unknown]
  - Weight increased [Unknown]
  - Postoperative adhesion [Unknown]
  - Weight decreased [Unknown]
  - Metabolic surgery [Unknown]
  - Sensation of blood flow [Unknown]
  - Shoulder operation [Unknown]
  - Generalised tonic-clonic seizure [Unknown]

NARRATIVE: CASE EVENT DATE: 2010
